FAERS Safety Report 7267255-X (Version None)
Quarter: 2011Q1

REPORT INFORMATION
  Report Type: 
  Country: None (occurrence: None)
  Receive Date: 20110121
  Receipt Date: 20110110
  Transmission Date: 20110831
  Serious: Yes (Life-Threatening)
  Sender: FDA-Public Use
  Company Number: 803836

PATIENT
  Sex: Female
  Weight: 3.87 kg

DRUGS (4)
  1. (FUROSEMIDE) [Concomitant]
  2. DIGOXIN [Concomitant]
  3. (AMIODARONE) [Suspect]
     Indication: ATRIAL FLUTTER
     Dosage: 5 MG/KG, INTRAVENOUS BOLUS, 15 MG/KG MILLIGRAM(S)/KILOGRAM, INTRAVENOUS DRIP
     Route: 040
  4. HEPARIN SODIUM [Suspect]
     Indication: PROTHROMBIN LEVEL INCREASED
     Dosage: 500 IU/KG/KILOGRAM, INTRAVENOUS
     Route: 042

REACTIONS (4)
  - CARDIAC FAILURE [None]
  - TREATMENT FAILURE [None]
  - DRUG THERAPEUTIC INCOMPATIBILITY [None]
  - SUPRAVENTRICULAR EXTRASYSTOLES [None]
